FAERS Safety Report 7483421-2 (Version None)
Quarter: 2011Q2

REPORT INFORMATION
  Report Type: 
  Country: None (occurrence: None)
  Receive Date: 20110512
  Receipt Date: 20110512
  Transmission Date: 20111010
  Serious: Yes (Hospitalization, Disabling, Other)
  Sender: FDA-Public Use
  Company Number: None

PATIENT
  Sex: Female
  Weight: 70.3075 kg

DRUGS (4)
  1. PREDNISONE [Suspect]
     Indication: CROHN'S DISEASE
     Dosage: UNKNOWN
     Dates: start: 20091001
  2. PREDNISONE [Suspect]
     Indication: CHRONIC OBSTRUCTIVE PULMONARY DISEASE
     Dosage: UNKNOWN
     Dates: start: 20091001
  3. PREDNISONE [Suspect]
     Indication: CROHN'S DISEASE
     Dosage: UNKNOWN
     Dates: start: 20100501
  4. PREDNISONE [Suspect]
     Indication: CHRONIC OBSTRUCTIVE PULMONARY DISEASE
     Dosage: UNKNOWN
     Dates: start: 20100501

REACTIONS (4)
  - PAIN [None]
  - THROMBOSIS [None]
  - CHRONIC OBSTRUCTIVE PULMONARY DISEASE [None]
  - OSTEONECROSIS [None]
